FAERS Safety Report 5032390-3 (Version None)
Quarter: 2006Q2

REPORT INFORMATION
  Report Type: 
  Country: None (occurrence: None)
  Receive Date: 20060620
  Receipt Date: 20060609
  Transmission Date: 20061013
  Serious: Yes (Other)
  Sender: FDA-Public Use
  Company Number: 2006RL000209

PATIENT

DRUGS (2)
  1. OMACOR [Suspect]
     Dosage: 2 GM;QD; PO
     Route: 048
     Dates: start: 20050101
  2. AMICAR [Suspect]
     Dosage: 2 GM;QD; PO
     Route: 048
     Dates: start: 20050101, end: 20050101

REACTIONS (2)
  - INTERCEPTED MEDICATION ERROR [None]
  - MEDICATION ERROR [None]
